FAERS Safety Report 4280523-9 (Version None)
Quarter: 2004Q1

REPORT INFORMATION
  Report Type: 
  Country: None (occurrence: None)
  Receive Date: 20040127
  Receipt Date: 20040116
  Transmission Date: 20041129
  Serious: Yes (Other)
  Sender: FDA-Public Use
  Company Number: 2004194632JP

PATIENT
  Age: 17 Year
  Sex: Male

DRUGS (2)
  1. CAMPTOSAR [Suspect]
     Indication: EWING'S SARCOMA
     Dosage: IV DRIP
     Route: 041
  2. VINCRISTINE [Suspect]
     Indication: EWING'S SARCOMA
     Dosage: IV
     Route: 042

REACTIONS (6)
  - ASCITES [None]
  - CHEST PAIN [None]
  - HEPATOMEGALY [None]
  - HYPERBILIRUBINAEMIA [None]
  - PULMONARY VENO-OCCLUSIVE DISEASE [None]
  - THROMBOCYTOPENIA [None]
